FAERS Safety Report 10159284 (Version 1)
Quarter: 2014Q2

REPORT INFORMATION
  Report Type: Spontaneous
  Country: US (occurrence: US)
  Receive Date: 20140508
  Receipt Date: 20140508
  Transmission Date: 20141212
  Serious: Yes (Hospitalization)
  Sender: FDA-Public Use
  Company Number: US-SA-2014SA057666

PATIENT
  Age: 16 Year
  Sex: Female

DRUGS (2)
  1. FABRAZYME [Suspect]
     Indication: FABRY^S DISEASE
     Route: 042
     Dates: start: 20120730
  2. MIDOL [Suspect]
     Indication: PRODUCT USED FOR UNKNOWN INDICATION
     Route: 065

REACTIONS (5)
  - Suicide attempt [Unknown]
  - Depression [Not Recovered/Not Resolved]
  - Social avoidant behaviour [Unknown]
  - Decreased interest [Unknown]
  - Performance status decreased [Unknown]
